FAERS Safety Report 24606284 (Version 1)
Quarter: 2024Q4

REPORT INFORMATION
  Report Type: Spontaneous
  Country: JP (occurrence: JP)
  Receive Date: 20241112
  Receipt Date: 20241112
  Transmission Date: 20250115
  Serious: Yes (Other)
  Sender: ALEXION PHARMACEUTICALS
  Company Number: JP-ASTRAZENECA-240115449_013020_P_1

PATIENT
  Age: 56 Year

DRUGS (20)
  1. OSIMERTINIB [Suspect]
     Active Substance: OSIMERTINIB
     Indication: Non-small cell lung cancer
  2. OSIMERTINIB [Suspect]
     Active Substance: OSIMERTINIB
  3. OSIMERTINIB [Suspect]
     Active Substance: OSIMERTINIB
  4. OSIMERTINIB [Suspect]
     Active Substance: OSIMERTINIB
  5. OSIMERTINIB [Suspect]
     Active Substance: OSIMERTINIB
  6. OSIMERTINIB [Suspect]
     Active Substance: OSIMERTINIB
  7. OSIMERTINIB [Suspect]
     Active Substance: OSIMERTINIB
  8. OSIMERTINIB [Suspect]
     Active Substance: OSIMERTINIB
  9. CISPLATIN [Suspect]
     Active Substance: CISPLATIN
     Indication: Non-small cell lung cancer
     Dosage: DOSE UNKNOWN
     Route: 065
  10. CISPLATIN [Suspect]
     Active Substance: CISPLATIN
     Dosage: DOSE UNKNOWN
  11. CISPLATIN [Suspect]
     Active Substance: CISPLATIN
     Dosage: DOSE UNKNOWN
     Route: 065
  12. CISPLATIN [Suspect]
     Active Substance: CISPLATIN
     Dosage: DOSE UNKNOWN
  13. PEMETREXED [Concomitant]
     Active Substance: PEMETREXED
     Indication: Non-small cell lung cancer
     Dosage: DOSE UNKNOWN
     Route: 065
  14. PEMETREXED [Concomitant]
     Active Substance: PEMETREXED
     Dosage: DOSE UNKNOWN
  15. PEMETREXED [Concomitant]
     Active Substance: PEMETREXED
     Dosage: DOSE UNKNOWN
     Route: 065
  16. PEMETREXED [Concomitant]
     Active Substance: PEMETREXED
     Dosage: DOSE UNKNOWN
  17. CARBOPLATIN [Concomitant]
     Active Substance: CARBOPLATIN
     Indication: Non-small cell lung cancer
     Dosage: DOSE UNKNOWN
     Route: 065
  18. CARBOPLATIN [Concomitant]
     Active Substance: CARBOPLATIN
     Dosage: DOSE UNKNOWN
  19. CARBOPLATIN [Concomitant]
     Active Substance: CARBOPLATIN
     Dosage: DOSE UNKNOWN
     Route: 065
  20. CARBOPLATIN [Concomitant]
     Active Substance: CARBOPLATIN
     Dosage: DOSE UNKNOWN

REACTIONS (3)
  - Renal impairment [Recovering/Resolving]
  - Deep vein thrombosis [Unknown]
  - Pulmonary embolism [Unknown]
